FAERS Safety Report 5520463-8 (Version None)
Quarter: 2007Q4

REPORT INFORMATION
  Report Type: 
  Country: None (occurrence: None)
  Receive Date: 20071119
  Receipt Date: 20071112
  Transmission Date: 20080405
  Serious: Yes (Hospitalization, Other)
  Sender: FDA-Public Use
  Company Number: PHNU2006DE03530

PATIENT
  Age: 15 Year
  Sex: Male
  Weight: 63.6 kg

DRUGS (4)
  1. RITALIN [Suspect]
     Indication: ATTENTION DEFICIT/HYPERACTIVITY DISORDER
     Dosage: UNKNOWN
     Route: 048
     Dates: end: 20060401
  2. INSUMAN RAPID [Concomitant]
     Dosage: UNKNOWN
     Route: 058
  3. INSUMAN BASAL [Concomitant]
     Dosage: UNKNOWN
     Route: 058
  4. SEMILENTE MC [Concomitant]
     Dosage: UNKNOWN
     Route: 058

REACTIONS (11)
  - APHASIA [None]
  - CEREBRAL ARTERY STENOSIS [None]
  - DEPRESSED LEVEL OF CONSCIOUSNESS [None]
  - DISORIENTATION [None]
  - DYSPHAGIA [None]
  - ELECTROENCEPHALOGRAM ABNORMAL [None]
  - MUSCULAR WEAKNESS [None]
  - NUCLEAR MAGNETIC RESONANCE IMAGING ABNORMAL [None]
  - SPEECH DISORDER [None]
  - TRANSIENT ISCHAEMIC ATTACK [None]
  - ULTRASOUND DOPPLER ABNORMAL [None]
